FAERS Safety Report 17099249 (Version 3)
Quarter: 2020Q1

REPORT INFORMATION
  Report Type: Spontaneous
  Country: US (occurrence: US)
  Receive Date: 20191202
  Receipt Date: 20200128
  Transmission Date: 20200409
  Serious: Yes (Death, Hospitalization, Other)
  Sender: FDA-Public Use
  Company Number: US-PFIZER INC-2019513473

PATIENT
  Age: 83 Year
  Sex: Female

DRUGS (1)
  1. IBRANCE [Suspect]
     Active Substance: PALBOCICLIB
     Indication: BREAST CANCER METASTATIC
     Dosage: 100 MG, DAILY
     Route: 048
     Dates: start: 20190418, end: 20191106

REACTIONS (15)
  - Respiratory failure [Unknown]
  - Death [Fatal]
  - Interstitial lung disease [Unknown]
  - Vomiting [Unknown]
  - Anxiety [Unknown]
  - Coronary artery disease [Unknown]
  - Spinal osteoarthritis [Unknown]
  - Oral candidiasis [Unknown]
  - Nausea [Unknown]
  - Hiatus hernia [Unknown]
  - Synovial cyst [Unknown]
  - Pneumonitis [Unknown]
  - Pulmonary embolism [Unknown]
  - Lymphadenopathy [Unknown]
  - Osteoporosis [Unknown]

NARRATIVE: CASE EVENT DATE: 20191125
